FAERS Safety Report 7528789-3 (Version None)
Quarter: 2011Q2

REPORT INFORMATION
  Report Type: 
  Country: None (occurrence: None)
  Receive Date: 20110607
  Receipt Date: 20100407
  Transmission Date: 20111010
  Serious: No
  Sender: FDA-Public Use
  Company Number: US-ASTRAZENECA-2010SE15884

PATIENT
  Sex: Male

DRUGS (8)
  1. DIURETICS [Concomitant]
     Dosage: UNKNOWN
  2. VITAMIN B-12 [Concomitant]
     Dosage: UNKNOWN
  3. CARDIAC THERAPY [Concomitant]
     Dosage: UNKNOWN
  4. KIDNEY MEDS [Concomitant]
     Dosage: UNKNOWN
  5. VITAMINS [Concomitant]
     Dosage: UNKNOWN
  6. ASPIRIN [Concomitant]
     Dosage: UNKNOWN
  7. CALCIUM CARBONATE [Concomitant]
     Dosage: UNKNOWN
  8. PRILOSEC OTC [Suspect]
     Route: 048
     Dates: start: 20100307

REACTIONS (2)
  - INCORRECT DRUG ADMINISTRATION DURATION [None]
  - PRURITUS [None]
